FAERS Safety Report 14097391 (Version 1)
Quarter: 2017Q4

REPORT INFORMATION
  Report Type: Spontaneous
  Country: US (occurrence: US)
  Receive Date: 20171016
  Receipt Date: 20171016
  Transmission Date: 20180321
  Serious: Yes (Other)
  Sender: FDA-Public Use
  Company Number: US-AMGEN-USASP2016176051

PATIENT
  Age: 78 Year
  Sex: Female

DRUGS (5)
  1. PROLIA [Suspect]
     Active Substance: DENOSUMAB
     Indication: OSTEOPOROSIS POSTMENOPAUSAL
     Dosage: UNK
     Route: 065
     Dates: start: 201610
  2. GABAPENTIN. [Concomitant]
     Active Substance: GABAPENTIN
     Dosage: 800 MG, BID
  3. VALSARTAN. [Concomitant]
     Active Substance: VALSARTAN
     Dosage: 160.12 SOMETHING LIKE THAT
     Dates: start: 2006
  4. CORTISONE [Concomitant]
     Active Substance: CORTISONE\HYDROCORTISONE
     Dosage: UNK
  5. DILAUDID [Concomitant]
     Active Substance: HYDROMORPHONE HYDROCHLORIDE
     Dosage: 4 MG, QHS
     Dates: start: 201506

REACTIONS (3)
  - Dysstasia [Unknown]
  - Back pain [Unknown]
  - Cataract [Unknown]

NARRATIVE: CASE EVENT DATE: 201610
